FAERS Safety Report 9602141 (Version 2)
Quarter: 2014Q1

REPORT INFORMATION
  Report Type: Spontaneous
  Country: GB (occurrence: None)
  Receive Date: 20131002
  Receipt Date: 20140218
  Transmission Date: 20141002
  Serious: Yes (Disabling, Other)
  Sender: FDA-Public Use
  Company Number: FK201304312

PATIENT
  Age: 69 Year
  Sex: Female
  Weight: 69.85 kg

DRUGS (5)
  1. ANASTROZOLE [Suspect]
     Indication: POSTOPERATIVE CARE
     Dates: end: 20130715
  2. AMLODIPINE (AMLODIPINE) [Concomitant]
     Dates: end: 20130715
  3. LOSARTAN [Concomitant]
  4. AMLODIPINE (AMLODIPINE) [Concomitant]
  5. ASPIRIN (ACETYLSALICYLIC ACID) [Concomitant]

REACTIONS (11)
  - Arthralgia [None]
  - Vascular compression [None]
  - Pain in extremity [None]
  - Abdominal discomfort [None]
  - Fatigue [None]
  - Pain in extremity [None]
  - Pain in extremity [None]
  - Sleep disorder [None]
  - Arthralgia [None]
  - Dysgraphia [None]
  - Pain in extremity [None]
